FAERS Safety Report 4893700-0 (Version None)
Quarter: 2005Q4

REPORT INFORMATION
  Report Type: 
  Country: None (occurrence: None)
  Receive Date: 20051223
  Receipt Date: 20051107
  Transmission Date: 20060501
  Serious: No
  Sender: FDA-Public Use
  Company Number: 2005PV004092

PATIENT
  Sex: Female
  Weight: 109.3169 kg

DRUGS (12)
  1. SYMLIN [Suspect]
     Indication: DIABETES MELLITUS NON-INSULIN-DEPENDENT
     Dosage: 60 MCG; BID : 60 MCG; TID :  SC
     Route: 058
     Dates: start: 20051103, end: 20051103
  2. SYMLIN [Suspect]
     Indication: DIABETES MELLITUS NON-INSULIN-DEPENDENT
     Dosage: 60 MCG; BID : 60 MCG; TID :  SC
     Route: 058
     Dates: start: 20051104, end: 20051104
  3. NEORAL [Concomitant]
  4. LANTUS [Concomitant]
  5. NOVOLOG [Concomitant]
  6. DIOVAN [Concomitant]
  7. CARDIZEM - SLOW RELEASE [Concomitant]
  8. DIGITEK [Concomitant]
  9. ZOLOFT [Concomitant]
  10. CLARITIN [Concomitant]
  11. ZANAFLEX [Concomitant]
  12. PROTONIX [Concomitant]

REACTIONS (4)
  - DIARRHOEA [None]
  - HUNGER [None]
  - NAUSEA [None]
  - PRURITUS GENERALISED [None]
